FAERS Safety Report 7572021-1 (Version None)
Quarter: 2011Q2

REPORT INFORMATION
  Report Type: 
  Country: None (occurrence: None)
  Receive Date: 20110624
  Receipt Date: 20110620
  Transmission Date: 20111010
  Serious: Yes (Other)
  Sender: FDA-Public Use
  Company Number: US-PFIZER INC-US-WYE-H15734310

PATIENT
  Sex: Male
  Weight: 77.1 kg

DRUGS (13)
  1. LAMICTAL [Concomitant]
     Indication: AFFECTIVE DISORDER
     Dosage: 150MG AM, 250MG PM
     Dates: start: 20100506
  2. SEROQUEL [Concomitant]
     Dosage: UNK
  3. CYCLOBENZAPRINE [Concomitant]
     Indication: NECK PAIN
     Dosage: 10 MG, AS NEEDED
     Route: 048
     Dates: start: 20100913
  4. PRISTIQ [Suspect]
     Dosage: 50 MG, 1X/DAY
     Route: 048
     Dates: end: 20100609
  5. LITHIUM [Concomitant]
     Indication: AFFECTIVE DISORDER
     Dosage: 450 MG, 1X/DAY
     Dates: start: 20110224
  6. PRISTIQ [Suspect]
     Indication: DEPRESSION
     Dosage: 50 MG, 1X/DAY
     Route: 048
     Dates: start: 20100114, end: 20100405
  7. PRISTIQ [Suspect]
     Dosage: ONE HALF A PILL PER DAY
     Dates: start: 20100611
  8. LIPITOR [Concomitant]
     Dosage: UNK
  9. PRISTIQ [Suspect]
     Dosage: 25 MG, 1X/DAY
     Route: 048
     Dates: start: 20100610
  10. ABILIFY [Concomitant]
     Dosage: 2 MG, 1X/DAY
     Route: 048
     Dates: start: 20110329
  11. TRAZODONE [Concomitant]
     Indication: SLEEP DISORDER
     Dosage: 50 MG, UNK
     Dates: start: 20100405
  12. ACETAMINOPHEN AND HYDROCODONE BITARTRATE [Concomitant]
     Indication: HEADACHE
     Dosage: 5-325MG, 1-2 TABS EVERY 3-6 HOURS AS NEEDED
     Dates: start: 20100924
  13. SIMVASTATIN [Concomitant]
     Dosage: 20 MG, 1X/DAY
     Dates: start: 20110217

REACTIONS (14)
  - INSOMNIA [None]
  - SUICIDAL IDEATION [None]
  - BIPOLAR DISORDER [None]
  - DEPRESSION [None]
  - INFLUENZA LIKE ILLNESS [None]
  - WRONG TECHNIQUE IN DRUG USAGE PROCESS [None]
  - IRRITABILITY [None]
  - HYPOMANIA [None]
  - HYPERHIDROSIS [None]
  - DRUG WITHDRAWAL SYNDROME [None]
  - HYPERTENSION [None]
  - ANXIETY [None]
  - ANGER [None]
  - FATIGUE [None]
